FAERS Safety Report 7293537-1 (Version None)
Quarter: 2011Q1

REPORT INFORMATION
  Report Type: 
  Country: None (occurrence: None)
  Receive Date: 20110202
  Receipt Date: 20110120
  Transmission Date: 20110831
  Serious: Yes (Other)
  Sender: FDA-Public Use
  Company Number: 2011-0214

PATIENT
  Age: 15 Year
  Sex: Male
  Weight: 53 kg

DRUGS (6)
  1. INCRELEX [Suspect]
     Indication: GROWTH RETARDATION
     Dosage: SEE IMAGE
     Dates: start: 20090324, end: 20090427
  2. INCRELEX [Suspect]
     Indication: GROWTH RETARDATION
     Dosage: SEE IMAGE
     Dates: start: 20090713
  3. INCRELEX [Suspect]
     Indication: GROWTH RETARDATION
     Dosage: SEE IMAGE
     Dates: start: 20090428, end: 20090712
  4. FOLIC ACID [Concomitant]
  5. METHOTREXATE [Concomitant]
  6. SLOW IRON [Concomitant]

REACTIONS (2)
  - UNEVALUABLE EVENT [None]
  - AGGRESSION [None]
